FAERS Safety Report 16341206 (Version 2)
Quarter: 2019Q2

REPORT INFORMATION
  Report Type: Spontaneous
  Country: FR (occurrence: FR)
  Receive Date: 20190522
  Receipt Date: 20190628
  Transmission Date: 20190711
  Serious: Yes (Hospitalization)
  Sender: FDA-Public Use
  Company Number: FR-ROCHE-2320410

PATIENT
  Age: 32 Year
  Sex: Female

DRUGS (3)
  1. KEPPRA [Suspect]
     Active Substance: LEVETIRACETAM
     Indication: EPILEPSY
     Dosage: 2GRAM/DAY
     Route: 065
  2. RIVOTRIL [Suspect]
     Active Substance: CLONAZEPAM
     Dosage: 0.5/DAY (UNIT NOT REPORTED) IN THE EVENING
     Route: 065
     Dates: end: 2018
  3. RIVOTRIL [Suspect]
     Active Substance: CLONAZEPAM
     Indication: EPILEPSY
     Dosage: DOSE INCREASED WITH ADDITION OF 1/4 DF IN MORNING
     Route: 065
     Dates: start: 20180322, end: 2018

REACTIONS (4)
  - Epilepsy [Unknown]
  - Uterine disorder [Unknown]
  - Breech delivery [Unknown]
  - Maternal exposure before pregnancy [Unknown]

NARRATIVE: CASE EVENT DATE: 201806
